FAERS Safety Report 7818363-3 (Version None)
Quarter: 2011Q4

REPORT INFORMATION
  Report Type: 
  Country: None (occurrence: None)
  Receive Date: 20111017
  Receipt Date: 20111007
  Transmission Date: 20120403
  Serious: Yes (Hospitalization, Other)
  Sender: FDA-Public Use
  Company Number: US-ASTRAZENECA-2011SE37347

PATIENT
  Age: 60 Year
  Sex: Male

DRUGS (1)
  1. NEXIUM [Suspect]
     Indication: GASTROOESOPHAGEAL REFLUX DISEASE
     Route: 048
     Dates: start: 20010101

REACTIONS (4)
  - ARTHRITIS [None]
  - CERVICAL SPINAL STENOSIS [None]
  - LUMBAR SPINAL STENOSIS [None]
  - INTERVERTEBRAL DISC DEGENERATION [None]
